FAERS Safety Report 6531271-3 (Version None)
Quarter: 2010Q1

REPORT INFORMATION
  Report Type: 
  Country: None (occurrence: None)
  Receive Date: 20100108
  Receipt Date: 20100105
  Transmission Date: 20100710
  Serious: Yes (Other)
  Sender: FDA-Public Use
  Company Number: CA-JNJFOC-20100101598

PATIENT
  Sex: Male
  Weight: 95 kg

DRUGS (4)
  1. REMICADE [Suspect]
     Route: 042
  2. REMICADE [Suspect]
     Indication: CROHN'S DISEASE
     Route: 042
  3. SALOFALK [Concomitant]
  4. BENADRYL [Concomitant]

REACTIONS (2)
  - ARTHRALGIA [None]
  - HEMIPARESIS [None]
